FAERS Safety Report 5413398-2 (Version None)
Quarter: 2007Q3

REPORT INFORMATION
  Report Type: 
  Country: None (occurrence: None)
  Receive Date: 20070814
  Receipt Date: 20070731
  Transmission Date: 20080115
  Serious: Yes (Hospitalization)
  Sender: FDA-Public Use
  Company Number: FR-JNJFOC-20070600510

PATIENT
  Sex: Female

DRUGS (4)
  1. TOPALGIC L.P. [Suspect]
     Route: 048
  2. TOPALGIC L.P. [Suspect]
     Indication: PAIN
     Route: 048
  3. TAVANIC [Interacting]
     Indication: LUNG DISORDER
     Route: 065
  4. CORTANCYL [Concomitant]

REACTIONS (3)
  - COORDINATION ABNORMAL [None]
  - DRUG INTERACTION [None]
  - EXTRAPYRAMIDAL DISORDER [None]
